FAERS Safety Report 20718333 (Version 2)
Quarter: 2023Q2

REPORT INFORMATION
  Report Type: Spontaneous
  Country: US (occurrence: US)
  Receive Date: 20220418
  Receipt Date: 20230515
  Transmission Date: 20230722
  Serious: Yes (Other)
  Sender: FDA-Public Use
  Company Number: US-UCBSA-2021029819

PATIENT
  Sex: Male
  Weight: 113 kg

DRUGS (1)
  1. NEUPRO [Suspect]
     Active Substance: ROTIGOTINE
     Indication: Restless legs syndrome
     Dosage: 2 MILLIGRAM, ONCE DAILY (QD)
     Dates: start: 2015

REACTIONS (4)
  - Drug ineffective [Unknown]
  - Restless legs syndrome [Not Recovered/Not Resolved]
  - Insomnia [Unknown]
  - Somnambulism [Unknown]

NARRATIVE: CASE EVENT DATE: 20190101
